FAERS Safety Report 5712981-4 (Version None)
Quarter: 2008Q2

REPORT INFORMATION
  Report Type: 
  Country: None (occurrence: None)
  Receive Date: 20080422
  Receipt Date: 20080407
  Transmission Date: 20081010
  Serious: Yes (Death)
  Sender: FDA-Public Use
  Company Number: GB-AVENTIS-200813435GDDC

PATIENT
  Age: 87 Year
  Sex: Female

DRUGS (3)
  1. GLYBURIDE [Suspect]
  2. AMILORIDE HYDROCHLORIDE [Suspect]
  3. HYDROCHLOROTHIAZIDE [Suspect]

REACTIONS (1)
  - AGRANULOCYTOSIS [None]
